FAERS Safety Report 11907887 (Version 16)
Quarter: 2017Q4

REPORT INFORMATION
  Report Type: Report from Study
  Country: US (occurrence: US)
  Receive Date: 20160111
  Receipt Date: 20171128
  Transmission Date: 20180320
  Serious: Yes (Death, Hospitalization, Other)
  Sender: FDA-Public Use
  Company Number: US-BAYER-2016-003742

PATIENT
  Age: 81 Year
  Sex: Female

DRUGS (9)
  1. STIVARGA [Suspect]
     Active Substance: REGORAFENIB
     Indication: COLON CANCER
     Dosage: DAILY DOSE 160 MG
     Route: 048
     Dates: start: 20151231
  2. STIVARGA [Suspect]
     Active Substance: REGORAFENIB
     Indication: COLON CANCER
     Dosage: 160 MG, QD
     Route: 048
  3. STIVARGA [Suspect]
     Active Substance: REGORAFENIB
     Indication: COLON CANCER
     Dosage: 80 MG ON EVEN DAYS AND 40 MG ON ODD DAYS FOR 21 DAYS
     Route: 048
     Dates: start: 2017, end: 2017
  4. STIVARGA [Suspect]
     Active Substance: REGORAFENIB
     Indication: COLON CANCER
     Dosage: 80 MG ON EVEN DAYS AND 40 MG TABLET ON ODD DAYS
     Dates: start: 20161212, end: 201710
  5. STIVARGA [Suspect]
     Active Substance: REGORAFENIB
     Indication: COLON CANCER
     Dosage: TOTAL DAILY DOSE 160 MG
     Route: 048
     Dates: start: 20160106
  6. STIVARGA [Suspect]
     Active Substance: REGORAFENIB
     Indication: COLON CANCER
     Dosage: 160 MG, QD
     Route: 048
     Dates: start: 20160102, end: 20160103
  7. STIVARGA [Suspect]
     Active Substance: REGORAFENIB
     Indication: COLON CANCER
     Dosage: UNK
     Route: 048
     Dates: start: 20161212
  8. STIVARGA [Suspect]
     Active Substance: REGORAFENIB
     Indication: COLON CANCER
     Dosage: UNK
     Route: 048
     Dates: start: 2017
  9. STIVARGA [Suspect]
     Active Substance: REGORAFENIB
     Indication: COLON CANCER
     Dosage: 80 MG, QD (21 DAYS ON 7 DAYS OFF)
     Route: 048
     Dates: start: 20160209

REACTIONS (19)
  - Palmoplantar keratoderma [None]
  - Cardiac murmur [None]
  - Weight decreased [None]
  - Skin discolouration [None]
  - Dyspnoea [Recovering/Resolving]
  - Limb discomfort [None]
  - Pain in extremity [None]
  - Asthenia [None]
  - Pain [None]
  - Myocardial infarction [None]
  - Cardiac disorder [None]
  - Peripheral coldness [None]
  - Pain in extremity [Not Recovered/Not Resolved]
  - Off label use [None]
  - Death [Fatal]
  - Dyspnoea [None]
  - Therapy cessation [None]
  - Nausea [None]
  - Musculoskeletal disorder [None]

NARRATIVE: CASE EVENT DATE: 20160102
